FAERS Safety Report 9745847 (Version 1)
Quarter: 2013Q4

REPORT INFORMATION
  Report Type: Spontaneous
  Country: IT (occurrence: IT)
  Receive Date: 20131211
  Receipt Date: 20131211
  Transmission Date: 20140711
  Serious: Yes (Other)
  Sender: FDA-Public Use
  Company Number: IT-AMGEN-ITASP2013086704

PATIENT
  Sex: Female

DRUGS (3)
  1. PEGFILGRASTIM [Suspect]
     Indication: NEUTROPENIA
     Dosage: 6 MG, ON DAY 2 OF EACH BIWEEKLY CYCLE
     Route: 065
  2. DOCETAXEL [Suspect]
     Indication: BREAST CANCER
     Dosage: 75 MG/M2, UNK
     Route: 065
  3. DOCETAXEL [Suspect]
     Dosage: 100 MG/M2, UNK
     Route: 065

REACTIONS (3)
  - Arthralgia [Unknown]
  - Myalgia [Unknown]
  - Bone pain [Unknown]
